FAERS Safety Report 23187257 (Version 1)
Quarter: 2023Q4

REPORT INFORMATION
  Report Type: Spontaneous
  Country: US (occurrence: US)
  Receive Date: 20231115
  Receipt Date: 20231115
  Transmission Date: 20240109
  Serious: No
  Sender: FDA-Public Use
  Company Number: US-Calliditas-2023CAL01419

PATIENT
  Age: 66 Year
  Sex: Male

DRUGS (3)
  1. TARPEYO [Suspect]
     Active Substance: BUDESONIDE
     Indication: IgA nephropathy
     Dosage: 16 MG (4 MG CAPSULES) ONCE DAILY
     Route: 048
     Dates: start: 20230511
  2. SPARSENTAN [Concomitant]
     Active Substance: SPARSENTAN
  3. SPARSENTAN [Concomitant]
     Active Substance: SPARSENTAN

REACTIONS (4)
  - Confusional state [Unknown]
  - Amnesia [Unknown]
  - Dizziness [Unknown]
  - Dizziness [Unknown]
